FAERS Safety Report 17880823 (Version 1)
Quarter: 2020Q2

REPORT INFORMATION
  Report Type: Other
  Country: FI (occurrence: FI)
  Receive Date: 20200610
  Receipt Date: 20200610
  Transmission Date: 20200714
  Serious: Yes (Other)
  Sender: FDA-Public Use
  Company Number: FI-MERZ PHARMACEUTICALS GMBH-20-01938

PATIENT
  Age: 45 Year
  Sex: Male

DRUGS (1)
  1. BOTULINUM TOXIN TYPE A [Suspect]
     Active Substance: BOTULINUM TOXIN TYPE A
     Indication: URINARY INCONTINENCE

REACTIONS (4)
  - Cauda equina syndrome [Unknown]
  - Off label use [Unknown]
  - Condition aggravated [Unknown]
  - Symptom masked [Unknown]
